FAERS Safety Report 16868114 (Version 9)
Quarter: 2020Q2

REPORT INFORMATION
  Report Type: Spontaneous
  Country: US (occurrence: US)
  Receive Date: 20190930
  Receipt Date: 20200602
  Transmission Date: 20200713
  Serious: No
  Sender: FDA-Public Use
  Company Number: US-PFIZER INC-2019422213

PATIENT
  Age: 79 Year
  Sex: Female

DRUGS (1)
  1. IBRANCE [Suspect]
     Active Substance: PALBOCICLIB
     Indication: BREAST CANCER METASTATIC
     Dosage: 100 MG, UNK

REACTIONS (5)
  - Weight increased [Unknown]
  - Alopecia [Not Recovered/Not Resolved]
  - Muscle spasms [Unknown]
  - Fatigue [Unknown]
  - Irritability [Unknown]
